FAERS Safety Report 4286073-8 (Version None)
Quarter: 2004Q1

REPORT INFORMATION
  Report Type: 
  Country: None (occurrence: None)
  Receive Date: 20040202
  Receipt Date: 20040202
  Transmission Date: 20041129
  Serious: No
  Sender: FDA-Public Use
  Company Number: None

PATIENT
  Sex: Female
  Weight: 1.93 kg

DRUGS (4)
  1. ZIDOVUDINE [Suspect]
     Indication: HIV INFECTION
     Dosage: 3.86 MG Q6 H PO
     Route: 048
     Dates: start: 20030903, end: 20030912
  2. AMIKECIN [Concomitant]
  3. AMPICILLIN [Concomitant]
  4. NEUIRAPINE [Concomitant]

REACTIONS (1)
  - NEUTROPENIA NEONATAL [None]
